FAERS Safety Report 6075402-0 (Version None)
Quarter: 2009Q1

REPORT INFORMATION
  Report Type: 
  Country: None (occurrence: None)
  Receive Date: 20090210
  Receipt Date: 20090210
  Transmission Date: 20090719
  Serious: Yes (Disabling)
  Sender: FDA-Public Use
  Company Number: None

PATIENT
  Age: 55 Year
  Sex: Female
  Weight: 92.5338 kg

DRUGS (1)
  1. BYETTA [Suspect]
     Indication: DIABETES MELLITUS
     Dosage: INJECTION DAILY
     Dates: start: 20080322, end: 20080924

REACTIONS (3)
  - GASTRIC DISORDER [None]
  - INFLUENZA LIKE ILLNESS [None]
  - MALAISE [None]
